FAERS Safety Report 20914273 (Version 9)
Quarter: 2025Q1

REPORT INFORMATION
  Report Type: Spontaneous
  Country: US (occurrence: US)
  Receive Date: 20220604
  Receipt Date: 20250113
  Transmission Date: 20250408
  Serious: No
  Sender: SANOFI AVENTIS
  Company Number: US-SA-SAC20220520000081

PATIENT
  Age: 60 Year
  Sex: Male

DRUGS (45)
  1. DUPIXENT [Suspect]
     Active Substance: DUPILUMAB
     Indication: Asthma
     Dosage: 300 MG, QOW
     Route: 058
     Dates: start: 20200915
  2. DUPIXENT [Suspect]
     Active Substance: DUPILUMAB
     Indication: Nasal polyps
  3. ALBUTEROL SULFATE [Concomitant]
     Active Substance: ALBUTEROL SULFATE
  4. ALBUTEROL SULFATE [Concomitant]
     Active Substance: ALBUTEROL SULFATE
  5. AZITHROMYCIN [Concomitant]
     Active Substance: AZITHROMYCIN
  6. AZITHROMYCIN [Concomitant]
     Active Substance: AZITHROMYCIN
  7. BREO ELLIPTA [Concomitant]
     Active Substance: FLUTICASONE FUROATE\VILANTEROL TRIFENATATE
  8. BREO ELLIPTA [Concomitant]
     Active Substance: FLUTICASONE FUROATE\VILANTEROL TRIFENATATE
  9. CELECOXIB [Concomitant]
     Active Substance: CELECOXIB
  10. GABAPENTIN [Concomitant]
     Active Substance: GABAPENTIN
  11. GABAPENTIN [Concomitant]
     Active Substance: GABAPENTIN
  12. ITRACONAZOLE [Concomitant]
     Active Substance: ITRACONAZOLE
  13. ITRACONAZOLE [Concomitant]
     Active Substance: ITRACONAZOLE
  14. MONTELUKAST SODIUM [Concomitant]
     Active Substance: MONTELUKAST SODIUM
  15. PREDNISONE [Concomitant]
     Active Substance: PREDNISONE
  16. PRILOSEC [Concomitant]
     Active Substance: OMEPRAZOLE MAGNESIUM
  17. SIMVASTATIN [Concomitant]
     Active Substance: SIMVASTATIN
  18. SIMVASTATIN [Concomitant]
     Active Substance: SIMVASTATIN
  19. SIMVASTATIN [Concomitant]
     Active Substance: SIMVASTATIN
  20. SIMVASTATIN [Concomitant]
     Active Substance: SIMVASTATIN
  21. TRELEGY ELLIPTA [Concomitant]
     Active Substance: FLUTICASONE FUROATE\UMECLIDINIUM BROMIDE\VILANTEROL TRIFENATATE
  22. TRELEGY ELLIPTA [Concomitant]
     Active Substance: FLUTICASONE FUROATE\UMECLIDINIUM BROMIDE\VILANTEROL TRIFENATATE
  23. DEXAMETHASONE PHOSPHATE [Concomitant]
     Active Substance: DEXAMETHASONE PHOSPHATE
  24. DEXAMETHASONE PHOSPHATE [Concomitant]
     Active Substance: DEXAMETHASONE PHOSPHATE
  25. DEXAMETHASONE PHOSPHATE [Concomitant]
     Active Substance: DEXAMETHASONE PHOSPHATE
  26. LISINOPRIL AND HYDROCHLOROTHIAZIDE [Concomitant]
     Active Substance: HYDROCHLOROTHIAZIDE\LISINOPRIL
  27. MONTELUKAST [Concomitant]
     Active Substance: MONTELUKAST
  28. MONTELUKAST [Concomitant]
     Active Substance: MONTELUKAST
  29. MONTELUKAST [Concomitant]
     Active Substance: MONTELUKAST
  30. METHOCARBAMOL [Concomitant]
     Active Substance: METHOCARBAMOL
  31. METHOCARBAMOL [Concomitant]
     Active Substance: METHOCARBAMOL
  32. METHYLPREDNISOLONE [Concomitant]
     Active Substance: METHYLPREDNISOLONE
  33. METHYLPREDNISOLONE [Concomitant]
     Active Substance: METHYLPREDNISOLONE
  34. DEXAMETHASONE [Concomitant]
     Active Substance: DEXAMETHASONE
  35. ALBUTEROL [Concomitant]
     Active Substance: ALBUTEROL
  36. ALBUTEROL [Concomitant]
     Active Substance: ALBUTEROL
  37. CORTICOSTEROID NOS [Concomitant]
     Active Substance: CORTICOSTEROID NOS
     Route: 048
  38. PREDNISONE [Concomitant]
     Active Substance: PREDNISONE
     Indication: Asthma
     Dosage: QOD
  39. PREDNISONE [Concomitant]
     Active Substance: PREDNISONE
  40. PREDNISONE [Concomitant]
     Active Substance: PREDNISONE
     Indication: Asthma
  41. PREDNISONE [Concomitant]
     Active Substance: PREDNISONE
  42. COLCHICINE [Concomitant]
     Active Substance: COLCHICINE
  43. COLCHICINE [Concomitant]
     Active Substance: COLCHICINE
  44. PRILOSEC OTC [Concomitant]
     Active Substance: OMEPRAZOLE MAGNESIUM
  45. OMEPRAZOLE [Concomitant]
     Active Substance: OMEPRAZOLE

REACTIONS (5)
  - Dyspnoea [Unknown]
  - Asthma [Not Recovered/Not Resolved]
  - Impaired quality of life [Not Recovered/Not Resolved]
  - Drug ineffective [Unknown]
  - Therapeutic response decreased [Unknown]
